FAERS Safety Report 6169732-1 (Version None)
Quarter: 2009Q2

REPORT INFORMATION
  Report Type: 
  Country: None (occurrence: None)
  Receive Date: 20090428
  Receipt Date: 20090420
  Transmission Date: 20091009
  Serious: Yes (Hospitalization, Other)
  Sender: FDA-Public Use
  Company Number: US-BAYER-200840264NA

PATIENT
  Age: 71 Year
  Sex: Female

DRUGS (2)
  1. LEUKINE [Suspect]
     Indication: NEUTROPENIA
     Route: 058
     Dates: start: 20081208
  2. CARBOTAXOL [Concomitant]
     Dates: start: 20081202

REACTIONS (7)
  - ASTHENIA [None]
  - CONVULSION [None]
  - DEPRESSED LEVEL OF CONSCIOUSNESS [None]
  - FAECAL INCONTINENCE [None]
  - PALLOR [None]
  - SYNCOPE [None]
  - VOMITING [None]
